FAERS Safety Report 16817030 (Version 2)
Quarter: 2020Q4

REPORT INFORMATION
  Report Type: Spontaneous
  Country: US (occurrence: US)
  Receive Date: 20190917
  Receipt Date: 20201006
  Transmission Date: 20210113
  Serious: No
  Sender: FDA-Public Use
  Company Number: US-ALLERGAN-1934662US

PATIENT
  Sex: Male

DRUGS (5)
  1. LINZESS [Suspect]
     Active Substance: LINACLOTIDE
     Dosage: 145 ?G, QD
     Route: 048
  2. LINZESS [Suspect]
     Active Substance: LINACLOTIDE
     Dosage: 145 ?G, QD
     Route: 048
  3. LINZESS [Suspect]
     Active Substance: LINACLOTIDE
     Indication: CONSTIPATION
     Dosage: 145 ?G, 2 CAPSULES PER DAY
     Route: 048
     Dates: start: 201906
  4. OPIOIDS [Concomitant]
     Active Substance: UNSPECIFIED INGREDIENT
     Indication: PAIN
  5. LINZESS [Suspect]
     Active Substance: LINACLOTIDE
     Dosage: 72 ?G, QD
     Route: 048

REACTIONS (6)
  - Gastrooesophageal reflux disease [Unknown]
  - Drug ineffective for unapproved indication [Unknown]
  - Inappropriate schedule of product administration [Unknown]
  - Anal incontinence [Unknown]
  - Upper-airway cough syndrome [Unknown]
  - Off label use [Unknown]
